FAERS Safety Report 7436930-6 (Version None)
Quarter: 2011Q2

REPORT INFORMATION
  Report Type: 
  Country: None (occurrence: None)
  Receive Date: 20110426
  Receipt Date: 20110413
  Transmission Date: 20111010
  Serious: Yes (Death, Other)
  Sender: FDA-Public Use
  Company Number: DK-TYCO HEALTHCARE/MALLINCKRODT-T201100805

PATIENT
  Age: 11 Day

DRUGS (1)
  1. FLUOXETINE [Suspect]

REACTIONS (6)
  - CEREBROVASCULAR DISORDER [None]
  - DRUG EXPOSURE DURING PREGNANCY [None]
  - NEONATAL ANOXIA [None]
  - NERVOUS SYSTEM DISORDER [None]
  - DRUG WITHDRAWAL SYNDROME NEONATAL [None]
  - PREMATURE BABY [None]
